FAERS Safety Report 6221887-6 (Version None)
Quarter: 2009Q2

REPORT INFORMATION
  Report Type: 
  Country: None (occurrence: None)
  Receive Date: 20090608
  Receipt Date: 20090608
  Transmission Date: 20091009
  Serious: Yes (Other)
  Sender: FDA-Public Use
  Company Number: None

PATIENT
  Age: 69 Year
  Sex: Male
  Weight: 68.0396 kg

DRUGS (1)
  1. TERAZOSIN HCL [Suspect]
     Indication: PROSTATOMEGALY
     Dosage: ONE PILL BEDTIME PO
     Route: 048
     Dates: start: 20090602, end: 20090602

REACTIONS (1)
  - BLOOD PRESSURE DECREASED [None]
